FAERS Safety Report 19983812 (Version 1)
Quarter: 2021Q4

REPORT INFORMATION
  Report Type: Spontaneous
  Country: CO (occurrence: CO)
  Receive Date: 20211021
  Receipt Date: 20211021
  Transmission Date: 20220303
  Serious: Yes (Hospitalization)
  Sender: FDA-Public Use
  Company Number: None

PATIENT
  Age: 34 Year
  Sex: Female
  Weight: 62 kg

DRUGS (1)
  1. ERYTHROMYCIN [Suspect]
     Active Substance: ERYTHROMYCIN
     Indication: Genital infection female
     Dosage: ?          QUANTITY:6 TABLET(S);
     Route: 048
     Dates: start: 20211017, end: 20211021

REACTIONS (4)
  - Pain [None]
  - Abdominal pain upper [None]
  - Palpitations [None]
  - Presyncope [None]

NARRATIVE: CASE EVENT DATE: 20211021
